FAERS Safety Report 7414094-2 (Version None)
Quarter: 2011Q2

REPORT INFORMATION
  Report Type: 
  Country: None (occurrence: None)
  Receive Date: 20110414
  Receipt Date: 20110411
  Transmission Date: 20111010
  Serious: No
  Sender: FDA-Public Use
  Company Number: US-PFIZER INC-2011079793

PATIENT
  Sex: Female
  Weight: 51.247 kg

DRUGS (4)
  1. ATENOLOL [Concomitant]
     Indication: HYPERTENSION
     Dosage: UNK
  2. LIPITOR [Suspect]
     Indication: BLOOD CHOLESTEROL INCREASED
     Dosage: 40 MG, DAILY
     Route: 048
  3. HYDROCHLOROTHIAZIDE [Concomitant]
     Dosage: UNK
  4. LIPITOR [Suspect]
     Dosage: 20 MG, 1X/DAY

REACTIONS (1)
  - MUSCLE DISORDER [None]
